FAERS Safety Report 10227345 (Version 2)
Quarter: 2014Q2

REPORT INFORMATION
  Report Type: Spontaneous
  Country: US (occurrence: None)
  Receive Date: 20140606
  Receipt Date: 20140627
  Transmission Date: 20141212
  Serious: Yes (Life-Threatening, Other)
  Sender: FDA-Public Use
  Company Number: AUR-APL-2014-06128

PATIENT
  Age: 46 Year
  Sex: Male

DRUGS (1)
  1. LEVOFLOXACIN (LEVOFLOXACIN) [Suspect]
     Indication: PRODUCT USED FOR UNKNOWN INDICATION
     Route: 048

REACTIONS (12)
  - Conjunctival abrasion [None]
  - Oral disorder [None]
  - Rash macular [None]
  - Secretion discharge [None]
  - Erythema [None]
  - Blister [None]
  - Bradypnoea [None]
  - Osmotic demyelination syndrome [None]
  - Hypoglycaemia [None]
  - Unresponsive to stimuli [None]
  - Quadriparesis [None]
  - Hyperthermia [None]
